FAERS Safety Report 7279796-X (Version None)
Quarter: 2011Q1

REPORT INFORMATION
  Report Type: 
  Country: None (occurrence: None)
  Receive Date: 20110208
  Receipt Date: 20110202
  Transmission Date: 20110831
  Serious: Yes (Hospitalization)
  Sender: FDA-Public Use
  Company Number: FR-PFIZER INC-2011023643

PATIENT
  Age: 58 Year
  Sex: Male

DRUGS (1)
  1. AMLOR [Suspect]
     Indication: HYPERTENSION
     Dosage: UNK
     Route: 048
     Dates: start: 20101130, end: 20101206

REACTIONS (3)
  - RASH [None]
  - DERMATITIS EXFOLIATIVE [None]
  - EOSINOPHILIA [None]
